FAERS Safety Report 23203686 (Version 2)
Quarter: 2024Q1

REPORT INFORMATION
  Report Type: Spontaneous
  Country: CA (occurrence: CA)
  Receive Date: 20231120
  Receipt Date: 20240221
  Transmission Date: 20240410
  Serious: No
  Sender: FDA-Public Use
  Company Number: CA-CELLTRION INC.-2023CA011731

PATIENT

DRUGS (9)
  1. INFLECTRA [Suspect]
     Active Substance: INFLIXIMAB-DYYB
     Indication: Crohn^s disease
     Dosage: 10 MG/KG INDUCTION WEEKS 0, 1, 3, 6 MAINTENANCE Q 8 WEEKS
     Route: 042
     Dates: start: 20230525
  2. INFLECTRA [Suspect]
     Active Substance: INFLIXIMAB-DYYB
     Dosage: 10 MG/KG (ONE DOSE 1 WEEK AFTER) INDUCTION WEEKS 0, 1, 3, 6 MAINTENANCE Q 8 WEEKS
     Route: 042
     Dates: start: 20230601
  3. INFLECTRA [Suspect]
     Active Substance: INFLIXIMAB-DYYB
     Dosage: 10 MG/KG, INDUCTION WEEKS 0, 1, 3, 6 MAINTENANCE Q 8 WEEKS.
     Route: 042
     Dates: start: 20230614
  4. INFLECTRA [Suspect]
     Active Substance: INFLIXIMAB-DYYB
     Dosage: 10 MG/KG, INDUCTION WEEKS 0, 1, 3, 6 MAINTENANCE Q 8 WEEKS.
     Route: 042
     Dates: start: 20230614
  5. INFLECTRA [Suspect]
     Active Substance: INFLIXIMAB-DYYB
     Dosage: 10 MG/KG, INDUCTION WEEKS 0, 1, 3, 6 MAINTENANCE Q 8 WEEKS.
     Route: 042
     Dates: start: 20230614
  6. INFLECTRA [Suspect]
     Active Substance: INFLIXIMAB-DYYB
     Dosage: 10 MG/KG, INDUCTION WEEKS 0, 1, 3, 6 MAINTENANCE Q 8 WEEKS.
     Route: 042
     Dates: start: 20230905, end: 20230905
  7. INFLECTRA [Suspect]
     Active Substance: INFLIXIMAB-DYYB
     Dosage: 10 MG/KG EVEY 4 WEEK
     Route: 042
     Dates: start: 20231003
  8. INFLECTRA [Suspect]
     Active Substance: INFLIXIMAB-DYYB
     Dosage: 10 MG/KG EVEY 4 WEEK (470 MG, 5 WEEKS AND 6 DAYS )
     Route: 042
     Dates: start: 20231113
  9. SOLU-MEDROL [Concomitant]
     Active Substance: METHYLPREDNISOLONE SODIUM SUCCINATE
     Dosage: 1 DF

REACTIONS (6)
  - Erythema [Not Recovered/Not Resolved]
  - Off label use [Unknown]
  - Off label use [Unknown]
  - Off label use [Unknown]
  - Intentional product use issue [Unknown]
  - Inappropriate schedule of product administration [Unknown]

NARRATIVE: CASE EVENT DATE: 20230525
